FAERS Safety Report 26129549 (Version 2)
Quarter: 2025Q4

REPORT INFORMATION
  Report Type: Spontaneous
  Country: US (occurrence: US)
  Receive Date: 20251208
  Receipt Date: 20251218
  Transmission Date: 20260117
  Serious: Yes (Other)
  Sender: AUROBINDO
  Company Number: US-MLMSERVICE-20251119-PI718276-00327-1

PATIENT
  Age: 65 Year
  Sex: Male

DRUGS (4)
  1. DIVALPROEX SODIUM [Interacting]
     Active Substance: DIVALPROEX SODIUM
     Indication: Bipolar disorder
     Dosage: 500 MILLIGRAM, DAILY
     Route: 065
  2. DIVALPROEX SODIUM [Interacting]
     Active Substance: DIVALPROEX SODIUM
     Dosage: 500 MILLIGRAM, TWO TIMES A DAY
     Route: 065
  3. WARFARIN [Interacting]
     Active Substance: WARFARIN
     Indication: Mitral valve replacement
     Dosage: UNK
     Route: 065
  4. VITAMIN K [Concomitant]
     Active Substance: PHYTONADIONE
     Indication: Product used for unknown indication
     Dosage: 2.5 MILLIGRAM
     Route: 061

REACTIONS (2)
  - International normalised ratio increased [Recovered/Resolved]
  - Drug interaction [Recovered/Resolved]
